FAERS Safety Report 25606306 (Version 1)
Quarter: 2025Q3

REPORT INFORMATION
  Report Type: Spontaneous
  Country: US (occurrence: None)
  Receive Date: 20250724
  Receipt Date: 20250724
  Transmission Date: 20251020
  Serious: Yes (Other)
  Sender: FDA-CTU
  Company Number: None

PATIENT
  Age: 27 Year
  Sex: Female
  Weight: 72 kg

DRUGS (4)
  1. VENLAFAXINE [Suspect]
     Active Substance: VENLAFAXINE HYDROCHLORIDE
     Dates: start: 20200317, end: 20250709
  2. HYDROXYZINE [Concomitant]
     Active Substance: HYDROXYZINE HYDROCHLORIDE
  3. ZOLOFT [Concomitant]
     Active Substance: SERTRALINE HYDROCHLORIDE
  4. VITAMIN B12 [Concomitant]
     Active Substance: CYANOCOBALAMIN

REACTIONS (9)
  - Withdrawal syndrome [None]
  - Intrusive thoughts [None]
  - Dizziness [None]
  - Vertigo [None]
  - Loss of personal independence in daily activities [None]
  - Disorientation [None]
  - Anxiety [None]
  - Fear of disease [None]
  - Activities of daily living assessment [None]

NARRATIVE: CASE EVENT DATE: 20250702
